FAERS Safety Report 8301728 (Version 2)
Quarter: 2014Q1

REPORT INFORMATION
  Report Type: Spontaneous
  Country: US (occurrence: US)
  Receive Date: 20111220
  Receipt Date: 20140122
  Transmission Date: 20141002
  Serious: Yes (Other)
  Sender: FDA-Public Use
  Company Number: US-BAYER-2011-120290

PATIENT
  Age: 40 Year
  Sex: Female

DRUGS (13)
  1. YAZ [Suspect]
     Dosage: UNK
     Route: 048
     Dates: start: 200903, end: 201001
  2. BENADRYL [Concomitant]
     Dosage: 25 MG, UNK
  3. HYDROCHLOROTHIAZIDE [Concomitant]
     Dosage: 25 MG, UNK
  4. KLOR-CON [Concomitant]
  5. LASIX [Concomitant]
     Dosage: 20 MG, UNK
  6. ZYRTEC [Concomitant]
     Dosage: 10 MG, UNK
  7. CIPROFLOXACIN [Concomitant]
     Dosage: 500 MG, UNK
  8. DOXYCYCLINE [Concomitant]
     Dosage: 100 MG, UNK
  9. TRAZODONE [Concomitant]
  10. SIMVASTIN [Concomitant]
  11. SEROQUEL [Concomitant]
  12. ASPIRIN [Concomitant]
  13. METOPROLOL [Concomitant]

REACTIONS (6)
  - Gallbladder disorder [None]
  - Cholecystitis chronic [None]
  - Pain [None]
  - Post cholecystectomy syndrome [None]
  - Injury [None]
  - Anxiety [None]
